FAERS Safety Report 21299674 (Version 1)
Quarter: 2022Q3

REPORT INFORMATION
  Report Type: Report from Study
  Country: TW (occurrence: TW)
  Receive Date: 20220906
  Receipt Date: 20220906
  Transmission Date: 20221027
  Serious: Yes (Other)
  Sender: FDA-Public Use
  Company Number: TW-MYLANLABS-2022M1090904

PATIENT
  Age: 50 Year
  Sex: Female

DRUGS (8)
  1. CISPLATIN [Suspect]
     Active Substance: CISPLATIN
     Indication: ALK gene rearrangement positive
     Dosage: UNK
     Route: 065
  2. CISPLATIN [Suspect]
     Active Substance: CISPLATIN
     Indication: Non-small cell lung cancer
  3. PEMETREXED [Suspect]
     Active Substance: PEMETREXED
     Indication: ALK gene rearrangement positive
     Dosage: UNK
     Route: 065
  4. PEMETREXED [Suspect]
     Active Substance: PEMETREXED
     Indication: Non-small cell lung cancer
  5. CRIZOTINIB [Suspect]
     Active Substance: CRIZOTINIB
     Indication: ALK gene rearrangement positive
     Dosage: UNK
     Route: 065
  6. CRIZOTINIB [Suspect]
     Active Substance: CRIZOTINIB
     Indication: Non-small cell lung cancer
  7. CERITINIB [Suspect]
     Active Substance: CERITINIB
     Indication: ALK gene rearrangement positive
     Dosage: UNK
     Route: 065
  8. CERITINIB [Suspect]
     Active Substance: CERITINIB
     Indication: Non-small cell lung cancer

REACTIONS (2)
  - Drug ineffective [Unknown]
  - Disease progression [Unknown]
